FAERS Safety Report 6666194-2 (Version None)
Quarter: 2010Q1

REPORT INFORMATION
  Report Type: 
  Country: None (occurrence: None)
  Receive Date: 20100330
  Receipt Date: 20100322
  Transmission Date: 20100710
  Serious: Yes (Death, Hospitalization)
  Sender: FDA-Public Use
  Company Number: 20108504

PATIENT
  Age: 19 Year
  Sex: Female

DRUGS (1)
  1. LIORESAL [Suspect]
     Indication: MUSCLE SPASTICITY
     Dosage: 1093.9 MCG, DAILY, INTRATHECAL
     Route: 037

REACTIONS (2)
  - RESPIRATORY DISORDER [None]
  - VIRAL INFECTION [None]
